FAERS Safety Report 11179476 (Version 2)
Quarter: 2015Q3

REPORT INFORMATION
  Report Type: Spontaneous
  Country: JP (occurrence: JP)
  Receive Date: 20150611
  Receipt Date: 20150706
  Transmission Date: 20151125
  Serious: Yes (Hospitalization, Other)
  Sender: FDA-Public Use
  Company Number: JP-ORION CORPORATION ORION PHARMA-ENT 2015-0914

PATIENT
  Sex: Male

DRUGS (3)
  1. NEUPRO [Concomitant]
     Active Substance: ROTIGOTINE
     Route: 065
  2. MADOPAR [Concomitant]
     Active Substance: BENSERAZIDE HYDROCHLORIDE\LEVODOPA
     Route: 065
  3. COMTAN [Suspect]
     Active Substance: ENTACAPONE
     Indication: PARKINSON^S DISEASE
     Route: 048

REACTIONS (3)
  - Jaundice cholestatic [Unknown]
  - Gallbladder cancer [Unknown]
  - Parkinson^s disease [Unknown]

NARRATIVE: CASE EVENT DATE: 20150414
